FAERS Safety Report 6826706-2 (Version None)
Quarter: 2010Q3

REPORT INFORMATION
  Report Type: 
  Country: None (occurrence: None)
  Receive Date: 20100709
  Receipt Date: 20100701
  Transmission Date: 20110219
  Serious: Yes (Hospitalization, Other)
  Sender: FDA-Public Use
  Company Number: DE-JNJFOC-20100700455

PATIENT
  Sex: Female

DRUGS (6)
  1. REMINYL [Suspect]
     Indication: ACCIDENTAL EXPOSURE
     Route: 048
     Dates: start: 20100701, end: 20100701
  2. GLUCOPHAGE [Suspect]
     Indication: ACCIDENTAL EXPOSURE
     Route: 048
     Dates: start: 20100701, end: 20100701
  3. AMANTADINE HCL [Suspect]
     Indication: ACCIDENTAL EXPOSURE
     Route: 048
     Dates: start: 20100701, end: 20100701
  4. CONCOR [Suspect]
     Indication: ACCIDENTAL EXPOSURE
     Route: 048
     Dates: start: 20100701, end: 20100701
  5. DELIX PROTECT [Suspect]
     Indication: ACCIDENTAL EXPOSURE
     Route: 048
     Dates: start: 20100701, end: 20100701
  6. TEBONIN KONZENT [Suspect]
     Indication: ACCIDENTAL EXPOSURE
     Route: 048
     Dates: start: 20100701, end: 20100701

REACTIONS (3)
  - ACCIDENTAL EXPOSURE [None]
  - MALAISE [None]
  - VOMITING [None]
